FAERS Safety Report 10165138 (Version 1)
Quarter: 2014Q2

REPORT INFORMATION
  Report Type: Spontaneous
  Country: US (occurrence: US)
  Receive Date: 20140510
  Receipt Date: 20140510
  Transmission Date: 20141212
  Serious: No
  Sender: FDA-Public Use
  Company Number: US-BRISTOL-MYERS SQUIBB COMPANY-20301594

PATIENT
  Age: 54 Year
  Sex: Female
  Weight: 115.64 kg

DRUGS (4)
  1. BYDUREON [Suspect]
     Indication: TYPE 2 DIABETES MELLITUS
     Route: 058
     Dates: start: 20140222
  2. BYETTA [Suspect]
  3. FELODIPINE [Concomitant]
  4. DIOVAN [Concomitant]

REACTIONS (4)
  - Injection site extravasation [Recovered/Resolved]
  - Injection site nodule [Unknown]
  - Dysgeusia [Not Recovered/Not Resolved]
  - Paraesthesia oral [Not Recovered/Not Resolved]
